FAERS Safety Report 7131042-3 (Version None)
Quarter: 2010Q4

REPORT INFORMATION
  Report Type: 
  Country: None (occurrence: None)
  Receive Date: 20101201
  Receipt Date: 20101124
  Transmission Date: 20110411
  Serious: Yes (Hospitalization)
  Sender: FDA-Public Use
  Company Number: B0686888A

PATIENT
  Sex: Female

DRUGS (4)
  1. AUGMENTIN [Suspect]
     Indication: BRONCHITIS
     Dosage: 2TAB PER DAY
     Route: 048
     Dates: start: 20100929, end: 20101003
  2. CARVEDILOL [Concomitant]
     Dosage: 1U PER DAY
     Route: 048
  3. ACETYLSALICYLIC ACID [Concomitant]
     Dosage: 1U PER DAY
     Route: 048
  4. LISINOPRIL AND HYDROCHLOROTHIAZIDE [Concomitant]
     Dosage: 1TAB PER DAY
     Route: 048

REACTIONS (5)
  - BLOOD ALKALINE PHOSPHATASE INCREASED [None]
  - BLOOD BILIRUBIN INCREASED [None]
  - GAMMA-GLUTAMYLTRANSFERASE INCREASED [None]
  - HEPATITIS CHOLESTATIC [None]
  - PRURITUS GENERALISED [None]
